FAERS Safety Report 4730514-6 (Version None)
Quarter: 2005Q3

REPORT INFORMATION
  Report Type: 
  Country: None (occurrence: None)
  Receive Date: 20050725
  Receipt Date: 20050214
  Transmission Date: 20060218
  Serious: No
  Sender: FDA-Public Use
  Company Number: USA050290730

PATIENT
  Sex: Female
  Weight: 24 kg

DRUGS (6)
  1. STRATTERA [Suspect]
     Dosage: 40 MG/1 DAY
     Dates: start: 20040701
  2. RHINOCORT [Concomitant]
  3. MIRALAX [Concomitant]
  4. CLARINEX [Concomitant]
  5. ADVAIR DISKUS 100/50 [Concomitant]
  6. SINGULAIR (MONTELUKAST) [Concomitant]

REACTIONS (4)
  - CONSTIPATION [None]
  - NAUSEA [None]
  - PRESCRIBED OVERDOSE [None]
  - RETCHING [None]
